FAERS Safety Report 23306334 (Version 1)
Quarter: 2023Q4

REPORT INFORMATION
  Report Type: Spontaneous
  Country: US (occurrence: US)
  Receive Date: 20231218
  Receipt Date: 20231218
  Transmission Date: 20240110
  Serious: Yes (Hospitalization, Other)
  Sender: FDA-Public Use
  Company Number: US-ROCHE-3467724

PATIENT
  Sex: Male
  Weight: 64.013 kg

DRUGS (24)
  1. CAPECITABINE [Suspect]
     Active Substance: CAPECITABINE
     Indication: Breast cancer male
     Route: 048
  2. HERCEPTIN [Suspect]
     Active Substance: TRASTUZUMAB
     Indication: Breast cancer male
  3. HERCEPTIN [Suspect]
     Active Substance: TRASTUZUMAB
     Indication: Oestrogen receptor assay positive
  4. PERTUZUMAB [Suspect]
     Active Substance: PERTUZUMAB
     Indication: Product used for unknown indication
  5. ADO-TRASTUZUMAB EMTANSINE [Suspect]
     Active Substance: ADO-TRASTUZUMAB EMTANSINE
     Indication: HER2 positive breast cancer
  6. TYLENOL [Concomitant]
     Active Substance: ACETAMINOPHEN
  7. VITAMIN D3 [Concomitant]
     Active Substance: CHOLECALCIFEROL
  8. DECADRON [Concomitant]
     Active Substance: DEXAMETHASONE
  9. Mugard [Concomitant]
  10. MOTRIN [Concomitant]
     Active Substance: IBUPROFEN
  11. LACTOBACILLUS ACIDOPHILUS [Concomitant]
     Active Substance: LACTOBACILLUS ACIDOPHILUS
  12. COZAAR [Concomitant]
     Active Substance: LOSARTAN POTASSIUM
  13. MELATONIN [Concomitant]
     Active Substance: MELATONIN
  14. METOPROLOL SUCCINATE [Concomitant]
     Active Substance: METOPROLOL SUCCINATE
  15. AVELOX [Concomitant]
     Active Substance: MOXIFLOXACIN HYDROCHLORIDE
  16. ZOFRAN [Concomitant]
     Active Substance: ONDANSETRON HYDROCHLORIDE
  17. ROXICODONE [Concomitant]
     Active Substance: OXYCODONE HYDROCHLORIDE
  18. SODIUM BICARBONATE [Concomitant]
     Active Substance: SODIUM BICARBONATE
  19. TUCATINIB [Concomitant]
     Active Substance: TUCATINIB
  20. BENADRYL [Concomitant]
     Active Substance: DIPHENHYDRAMINE HYDROCHLORIDE
  21. PEPCID [Concomitant]
     Active Substance: FAMOTIDINE
  22. EPIPEN [Concomitant]
     Active Substance: EPINEPHRINE
  23. ALBUTEROL SULFATE [Concomitant]
     Active Substance: ALBUTEROL SULFATE
  24. HEPARIN [Concomitant]
     Active Substance: HEPARIN SODIUM

REACTIONS (27)
  - Neutropenia [Unknown]
  - Pleural effusion [Unknown]
  - Fatigue [Unknown]
  - Cough [Unknown]
  - Dyspnoea [Unknown]
  - Oral neoplasm [Unknown]
  - Arthralgia [Unknown]
  - Chest pain [Unknown]
  - Dehydration [Unknown]
  - Hepatic lesion [Unknown]
  - Cancer pain [Unknown]
  - Cardiac failure [Unknown]
  - Decreased appetite [Unknown]
  - Diarrhoea [Unknown]
  - Dysphagia [Unknown]
  - Gastritis viral [Unknown]
  - Hypercalcaemia [Unknown]
  - Malignant pleural effusion [Unknown]
  - Metastases to bone [Unknown]
  - Mucosal inflammation [Unknown]
  - Nausea [Unknown]
  - Palmar-plantar erythrodysaesthesia syndrome [Unknown]
  - Palmar-plantar erythrodysaesthesia syndrome [Unknown]
  - Pneumothorax [Unknown]
  - Pyrexia [Unknown]
  - Sciatica [Unknown]
  - Vomiting [Unknown]

NARRATIVE: CASE EVENT DATE: 20210601
